FAERS Safety Report 5333151-8 (Version None)
Quarter: 2007Q2

REPORT INFORMATION
  Report Type: 
  Country: None (occurrence: None)
  Receive Date: 20070524
  Receipt Date: 20070517
  Transmission Date: 20071010
  Serious: Yes (Hospitalization, Other)
  Sender: FDA-Public Use
  Company Number: PHEH2007US03903

PATIENT
  Age: 54 Year
  Sex: Female
  Weight: 63.945 kg

DRUGS (13)
  1. ZELNORM [Suspect]
     Indication: IRRITABLE BOWEL SYNDROME
     Dosage: 6 MG, QD
     Dates: start: 20070129, end: 20070327
  2. OGEN [Concomitant]
     Indication: HORMONE THERAPY
     Dosage: 1.25 UNK, QD
  3. ZYRTEC [Concomitant]
     Indication: HYPERSENSITIVITY
  4. ZETIA [Concomitant]
     Indication: BLOOD CHOLESTEROL
     Dosage: 2 MG, QD
  5. ZANAFLEX [Concomitant]
     Indication: MUSCLE SPASMS
  6. AZENZIA [Concomitant]
     Indication: PAIN
  7. NORCO [Concomitant]
     Indication: PAIN
  8. ASTELIN [Concomitant]
  9. LASIX [Concomitant]
  10. MAXAIR [Concomitant]
  11. ANALGESICS [Concomitant]
     Indication: PAIN
  12. ZOCOR [Concomitant]
     Dosage: 40 MG, QD
  13. VYTORIN [Concomitant]

REACTIONS (15)
  - ALANINE AMINOTRANSFERASE INCREASED [None]
  - ASPARTATE AMINOTRANSFERASE INCREASED [None]
  - ATELECTASIS [None]
  - BILIARY DILATATION [None]
  - BLOOD BICARBONATE DECREASED [None]
  - BLOOD GLUCOSE INCREASED [None]
  - BLOOD UREA ABNORMAL [None]
  - CHEST PAIN [None]
  - DYSPNOEA [None]
  - HYPERTENSION [None]
  - HYPOTENSION [None]
  - PALPITATIONS [None]
  - SHOCK [None]
  - SINUS TACHYCARDIA [None]
  - TREMOR [None]
